FAERS Safety Report 6287659-1 (Version None)
Quarter: 2009Q3

REPORT INFORMATION
  Report Type: 
  Country: None (occurrence: None)
  Receive Date: 20090727
  Receipt Date: 20090727
  Transmission Date: 20100115
  Serious: Yes (Death)
  Sender: FDA-Public Use
  Company Number: None

PATIENT
  Age: 61 Year
  Sex: Female
  Weight: 47.7 kg

DRUGS (11)
  1. FLUDEOXYGLUCOSE F 18 [Suspect]
     Indication: POSITRON EMISSION TOMOGRAM
     Dosage: 10 MCI +/- 10%, EVERY TWO YEARS, IV 040
     Route: 042
     Dates: start: 19990811, end: 20010815
  2. FLUDEOXYGLUCOSE F 18 [Suspect]
     Indication: POSITRON EMISSION TOMOGRAM
     Dosage: 10 MCI +/- 10%, EVERY TWO YEARS, IV 040
     Route: 042
     Dates: start: 20031006, end: 20031008
  3. FLUDEOXYGLUCOSE F 18 [Suspect]
     Indication: POSITRON EMISSION TOMOGRAM
     Dosage: 5 MCI +/- 10%, EVERY TWO YEARS, IV 040
     Route: 042
     Dates: start: 20050601, end: 20070730
  4. VAGIFEM [Concomitant]
  5. AMBIEN [Concomitant]
  6. MULTI-VITAMIN [Concomitant]
  7. FOLIC ACID [Concomitant]
  8. CALCIUM [Concomitant]
  9. FISH OIL [Concomitant]
  10. EVENING PRIMROSE OIL [Concomitant]
  11. BIOTIN [Concomitant]

REACTIONS (2)
  - RADIATION INJURY [None]
  - RENAL CANCER METASTATIC [None]
